FAERS Safety Report 6258472-6 (Version None)
Quarter: 2009Q3

REPORT INFORMATION
  Report Type: 
  Country: None (occurrence: None)
  Receive Date: 20090707
  Receipt Date: 20090625
  Transmission Date: 20100115
  Serious: Yes (Death, Life-Threatening)
  Sender: FDA-Public Use
  Company Number: JP-PFIZER INC-2009229513

PATIENT
  Age: 68 Year

DRUGS (9)
  1. GABAPEN [Suspect]
     Indication: PAIN IN EXTREMITY
     Dosage: 200 MG, 1X/DAY
     Route: 048
     Dates: start: 20090615, end: 20090601
  2. PANALDINE [Concomitant]
  3. ALESION [Concomitant]
  4. RENAGEL [Concomitant]
  5. ARTIST [Concomitant]
  6. VOLTAREN [Concomitant]
  7. PARIET [Concomitant]
  8. MORPHINE HYDROCHLORIDE [Concomitant]
  9. CLONAZEPAM [Concomitant]

REACTIONS (2)
  - CARDIO-RESPIRATORY ARREST [None]
  - DIZZINESS [None]
